FAERS Safety Report 13699344 (Version 1)
Quarter: 2017Q2

REPORT INFORMATION
  Report Type: Spontaneous
  Country: US (occurrence: US)
  Receive Date: 20170628
  Receipt Date: 20170628
  Transmission Date: 20170830
  Serious: Yes (Hospitalization)
  Sender: FDA-Public Use
  Company Number: US-VIFOR (INTERNATIONAL) INC.-VIT-2017-06947

PATIENT
  Sex: Male

DRUGS (13)
  1. ATORVASTATIN CALCIUM. [Concomitant]
     Active Substance: ATORVASTATIN CALCIUM
  2. GABAPENTIN. [Concomitant]
     Active Substance: GABAPENTIN
  3. GLUCOSE [Concomitant]
     Active Substance: DEXTROSE
  4. TAMSULOSIN HYDROCHLORIDE. [Concomitant]
     Active Substance: TAMSULOSIN HYDROCHLORIDE
  5. ACETYLSALICYLIC ACID [Concomitant]
     Active Substance: ASPIRIN
  6. DULOXETINE HYDROCHLORIDE. [Concomitant]
     Active Substance: DULOXETINE HYDROCHLORIDE
  7. AMITRIPTYLINE HYDROCHLORIDE. [Concomitant]
     Active Substance: AMITRIPTYLINE HYDROCHLORIDE
  8. OMEPRAZOLE. [Concomitant]
     Active Substance: OMEPRAZOLE
  9. SALBUTAMOL SULFATE [Concomitant]
     Active Substance: ALBUTEROL SULFATE
  10. VITAMINS NOS [Concomitant]
     Active Substance: VITAMINS
  11. VELTASSA [Suspect]
     Active Substance: PATIROMER
     Indication: HYPERKALAEMIA
     Route: 048
  12. FLUTICASONE PROPIONATE. [Concomitant]
     Active Substance: FLUTICASONE PROPIONATE
  13. INSULIN HUMAN [Concomitant]
     Active Substance: INSULIN HUMAN

REACTIONS (1)
  - Hospitalisation [Unknown]
